FAERS Safety Report 24360380 (Version 1)
Quarter: 2024Q3

REPORT INFORMATION
  Report Type: Report from Study
  Country: GB (occurrence: GB)
  Receive Date: 20240925
  Receipt Date: 20240925
  Transmission Date: 20241016
  Serious: Yes (Other)
  Sender: AMGEN
  Company Number: GB-Vifor (International) Inc.-VIT-2024-08288

PATIENT
  Age: 31 Year
  Sex: Female
  Weight: 150 kg

DRUGS (7)
  1. AVACOPAN [Suspect]
     Active Substance: AVACOPAN
     Indication: Anti-neutrophil cytoplasmic antibody positive vasculitis
     Dosage: 30 MILLIGRAM, QD
     Route: 048
     Dates: start: 20240301
  2. CYCLOPHOSPHAMIDE [Concomitant]
     Active Substance: CYCLOPHOSPHAMIDE
     Indication: Anti-neutrophil cytoplasmic antibody positive vasculitis
     Dosage: 750 MILLIGRAM (COMPLETION OF PLANNED COURSE)
     Dates: start: 20240229, end: 20240507
  3. RITUXIMAB [Concomitant]
     Active Substance: RITUXIMAB
     Indication: Anti-neutrophil cytoplasmic antibody positive vasculitis
     Dosage: 1000 MILLIGRAM, QWK (COMPLETION OF PLANNED COURSE)
     Dates: start: 20240302, end: 20240315
  4. METHYLPREDNISOLONE [Concomitant]
     Active Substance: METHYLPREDNISOLONE
     Indication: Anti-neutrophil cytoplasmic antibody positive vasculitis
     Dosage: 500 MILLIGRAM (COMPLETION OF PLANNED COURSE)
     Dates: start: 20240229, end: 20240229
  5. PREDNISOLONE [Concomitant]
     Active Substance: PREDNISOLONE
     Indication: Anti-neutrophil cytoplasmic antibody positive vasculitis
     Dosage: 60 MILLIGRAM, QD (COMPLETION OF PLANNED COURSE)
     Dates: start: 20240301, end: 20240306
  6. PREDNISOLONE [Concomitant]
     Active Substance: PREDNISOLONE
     Dosage: 45 MILLIGRAM, QD (COMPLETION OF PLANNED COURSE)
     Dates: start: 20240307, end: 20240311
  7. HUMAN PLASMA [Concomitant]
     Active Substance: HUMAN PLASMA
     Indication: Anti-neutrophil cytoplasmic antibody positive vasculitis
     Dosage: COMPLETION OF PLANNED COURSE
     Dates: start: 20240301, end: 20240311

REACTIONS (2)
  - Neutropenia [Recovered/Resolved]
  - Neutropenia [Recovered/Resolved]

NARRATIVE: CASE EVENT DATE: 20240607
